FAERS Safety Report 25152354 (Version 1)
Quarter: 2025Q2

REPORT INFORMATION
  Report Type: Spontaneous
  Country: CN (occurrence: CN)
  Receive Date: 20250402
  Receipt Date: 20250402
  Transmission Date: 20250716
  Serious: Yes (Hospitalization)
  Sender: EISAI
  Company Number: CN-Eisai-EC-2025-186388

PATIENT
  Age: 57 Year
  Sex: Female
  Weight: 42 kg

DRUGS (2)
  1. LENVATINIB [Suspect]
     Active Substance: LENVATINIB
     Indication: Cholangiocarcinoma
     Dates: start: 202412
  2. LENVATINIB [Suspect]
     Active Substance: LENVATINIB
     Dates: start: 20250306, end: 20250309

REACTIONS (2)
  - Haematochezia [Recovered/Resolved]
  - Hypertension [Unknown]
